FAERS Safety Report 12691284 (Version 1)
Quarter: 2016Q3

REPORT INFORMATION
  Report Type: Spontaneous
  Country: US (occurrence: US)
  Receive Date: 20160826
  Receipt Date: 20160826
  Transmission Date: 20161109
  Serious: Yes (Hospitalization)
  Sender: FDA-Public Use
  Company Number: US-BRISTOL-MYERS SQUIBB COMPANY-BMS-2016-068416

PATIENT
  Sex: Female
  Weight: 99.7 kg

DRUGS (1)
  1. YERVOY [Suspect]
     Active Substance: IPILIMUMAB
     Indication: MALIGNANT MELANOMA
     Dosage: UNK
     Route: 042

REACTIONS (8)
  - Pruritus [Unknown]
  - Rash [Unknown]
  - Joint swelling [Unknown]
  - Dehydration [Unknown]
  - Pain in extremity [Unknown]
  - Gastritis [Unknown]
  - Fatigue [Unknown]
  - Blood potassium decreased [Unknown]
